FAERS Safety Report 6398979-4 (Version None)
Quarter: 2009Q4

REPORT INFORMATION
  Report Type: 
  Country: None (occurrence: None)
  Receive Date: 20091013
  Receipt Date: 20091001
  Transmission Date: 20100525
  Serious: Yes (Other)
  Sender: FDA-Public Use
  Company Number: US-JNJCH-2009026428

PATIENT
  Age: 72 Year
  Sex: Female
  Weight: 86.2 kg

DRUGS (14)
  1. LUDENS THROAT DROPS WILD CHERRY [Suspect]
     Indication: OROPHARYNGEAL PAIN
     Dosage: TEXT:2 DROPS ON 9/30/09, 1 DROP ON 10/1/09
     Route: 048
  2. PRILOSEC [Concomitant]
     Indication: ANTACID THERAPY
     Dosage: TEXT:UNSPECIFIED ONCE DAILY
     Route: 065
  3. METFORMIN HYDROCHLORIDE [Concomitant]
     Indication: DIABETES MELLITUS
     Dosage: TEXT:500 MG FOUR TIME DAILY
     Route: 065
  4. PREMARIN [Concomitant]
     Indication: HORMONE THERAPY
     Dosage: TEXT:0.3 MG ONCE DAILY
     Route: 065
  5. ACTOS [Concomitant]
     Indication: DIABETES MELLITUS
     Dosage: TEXT:15 MG ONCE DAILY
     Route: 065
  6. CALAN - SLOW RELEASE [Concomitant]
     Indication: HYPERTENSION
     Dosage: TEXT:240 MG TWICE DAILY
     Route: 065
  7. VITAMIN B-12 [Concomitant]
     Indication: VITAMIN SUPPLEMENTATION
     Dosage: TEXT:500 MG ONCE DAILY
     Route: 065
  8. MAXIDEX [Concomitant]
     Indication: HYPERTENSION
     Dosage: TEXT:75/25 ONCE DAILY
     Route: 065
  9. OMEGA-3 MARINE TRIGLYCERIDES [Concomitant]
     Indication: BLOOD CHOLESTEROL
     Dosage: TEXT:1 G TWICE DAILY
     Route: 065
  10. ASPIRIN [Concomitant]
     Indication: CARDIAC DISORDER
     Dosage: TEXT:81 MG ONCE DAILY
     Route: 065
  11. TRICOR [Concomitant]
     Indication: BLOOD CHOLESTEROL
     Dosage: TEXT:145 MG ONCE DAILY
     Route: 065
  12. ALLEGRA [Concomitant]
     Indication: HYPERSENSITIVITY
     Dosage: TEXT:180 MG ONCE DAILY
     Route: 065
  13. ADVAIR DISKUS 100/50 [Concomitant]
     Indication: HYPERSENSITIVITY
     Dosage: TEXT:UNSPECIFIED TWICE DAILY
     Route: 055
  14. CALCIUM CARBONATE/COLECALCIFEROL [Concomitant]
     Indication: DRUG USE FOR UNKNOWN INDICATION
     Dosage: TEXT:500 MG TWICE DAILY
     Route: 065

REACTIONS (1)
  - BLOOD GLUCOSE INCREASED [None]
